FAERS Safety Report 6930646 (Version 2)
Quarter: 2014Q3

REPORT INFORMATION
  Report Type: Spontaneous
  Country: IT (occurrence: None)
  Receive Date: 20090224
  Receipt Date: 20140711
  Transmission Date: 20150326
  Serious: Yes (Other)
  Sender: FDA-Public Use
  Company Number: 178994

PATIENT
  Age: 39 Year
  Sex: Female

DRUGS (4)
  1. CHEMOTHERAPEUTICS NOS [Suspect]
     Active Substance: UNSPECIFIED INGREDIENT
     Indication: MEDULLOBLASTOMA
  2. CARBOPLATIN. [Suspect]
     Active Substance: CARBOPLATIN
     Indication: MEDULLOBLASTOMA
     Dosage: CYCLICAL
  3. THIOTEPA. [Suspect]
     Active Substance: THIOTEPA
     Indication: MEDULLOBLASTOMA
     Dosage: CYCLICAL
  4. THERAPEUTIC RADIOPHARMACEUTICALS [Suspect]
     Active Substance: RADIATION THERAPY
     Indication: MEDULLOBLASTOMA

REACTIONS (4)
  - Nuclear magnetic resonance imaging brain abnormal [None]
  - Brain mass [None]
  - Stem cell transplant [None]
  - Central nervous system lesion [None]
